FAERS Safety Report 5852230-X (Version None)
Quarter: 2008Q3

REPORT INFORMATION
  Report Type: 
  Country: None (occurrence: None)
  Receive Date: 20080820
  Receipt Date: 20080820
  Transmission Date: 20090109
  Serious: No
  Sender: FDA-Public Use
  Company Number: None

PATIENT
  Age: 21 Year
  Sex: Male

DRUGS (1)
  1. INDOMETHACIN [Suspect]
     Dosage: CAPSULE

REACTIONS (4)
  - DRUG HYPERSENSITIVITY [None]
  - ILL-DEFINED DISORDER [None]
  - MEDICATION ERROR [None]
  - PHARMACEUTICAL PRODUCT COMPLAINT [None]
